FAERS Safety Report 20247533 (Version 1)
Quarter: 2021Q4

REPORT INFORMATION
  Report Type: Spontaneous
  Country: US (occurrence: None)
  Receive Date: 20211228
  Receipt Date: 20211228
  Transmission Date: 20220303
  Serious: No
  Sender: FDA-Public Use
  Company Number: None

PATIENT
  Age: 49 Year
  Sex: Female

DRUGS (1)
  1. TALTZ [Suspect]
     Active Substance: IXEKIZUMAB
     Indication: Ankylosing spondylitis
     Dosage: OTHER QUANTITY : 160MG AT WK 0;80MG;?FREQUENCY : MONTHLY;?
     Route: 058
     Dates: start: 202110

REACTIONS (2)
  - Illness [None]
  - Therapy interrupted [None]
